FAERS Safety Report 26016046 (Version 1)
Quarter: 2025Q4

REPORT INFORMATION
  Report Type: Spontaneous
  Country: EU (occurrence: EU)
  Receive Date: 20251110
  Receipt Date: 20251110
  Transmission Date: 20260118
  Serious: Yes (Hospitalization)
  Sender: JOHNSON AND JOHNSON
  Company Number: None

PATIENT
  Age: 18 Year
  Sex: Male
  Weight: 82 kg

DRUGS (12)
  1. RISPERIDONE [Interacting]
     Active Substance: RISPERIDONE
     Indication: Psychotic disorder
     Route: 048
     Dates: start: 20230417, end: 20250419
  2. RISPERIDONE [Interacting]
     Active Substance: RISPERIDONE
  3. RISPERIDONE [Interacting]
     Active Substance: RISPERIDONE
  4. RISPERIDONE [Interacting]
     Active Substance: RISPERIDONE
  5. RISPERIDONE [Interacting]
     Active Substance: RISPERIDONE
  6. RISPERIDONE [Interacting]
     Active Substance: RISPERIDONE
  7. CANNABIDIOL [Interacting]
     Active Substance: CANNABIDIOL
     Indication: Erythromelalgia
     Route: 048
     Dates: start: 20230905
  8. INOVELON 40 mg/ml, suspension drinkable [Concomitant]
     Indication: Erythromelalgia
     Route: 048
     Dates: start: 20230417
  9. LANSOPRAZOLE [Concomitant]
     Active Substance: LANSOPRAZOLE
     Indication: Oesophagitis
     Route: 048
     Dates: start: 20210113
  10. FOLIC ACID [Concomitant]
     Active Substance: FOLIC ACID
     Indication: Vitamin supplementation
     Route: 048
     Dates: start: 20231230, end: 20250527
  11. TERCIAN 40 mg/ml, solution oral drops [Concomitant]
     Indication: Psychotic disorder
     Route: 048
     Dates: start: 20190702
  12. MELATONIN [Concomitant]
     Active Substance: MELATONIN
     Indication: Sleep disorder
     Route: 048
     Dates: start: 20190702

REACTIONS (2)
  - Drug interaction [Recovered/Resolved]
  - Hypothermia [Recovered/Resolved]

NARRATIVE: CASE EVENT DATE: 20230905
